FAERS Safety Report 11646464 (Version 1)
Quarter: 2015Q4

REPORT INFORMATION
  Report Type: Spontaneous
  Country: US (occurrence: US)
  Receive Date: 20151020
  Receipt Date: 20151020
  Transmission Date: 20160304
  Serious: No
  Sender: FDA-Public Use
  Company Number: US-ROCHE-ITM201503IM011838

PATIENT
  Sex: Male

DRUGS (1)
  1. ESBRIET [Suspect]
     Active Substance: PIRFENIDONE
     Indication: IDIOPATHIC PULMONARY FIBROSIS
     Route: 048
     Dates: start: 20150224

REACTIONS (10)
  - Cough [Unknown]
  - Weight fluctuation [Unknown]
  - Dyspnoea [Unknown]
  - Weight decreased [Unknown]
  - Stress [Unknown]
  - Oxygen consumption increased [Unknown]
  - Pneumonia [Recovered/Resolved]
  - Fatigue [Unknown]
  - Influenza [Recovered/Resolved]
  - Decreased appetite [Unknown]
